FAERS Safety Report 5903872-4 (Version None)
Quarter: 2008Q3

REPORT INFORMATION
  Report Type: 
  Country: None (occurrence: None)
  Receive Date: 20080919
  Receipt Date: 20080604
  Transmission Date: 20090109
  Serious: No
  Sender: FDA-Public Use
  Company Number: US-WYE-H04379908

PATIENT
  Age: 46 Year
  Sex: Female
  Weight: 40.86 kg

DRUGS (4)
  1. PRISTIQ (DESVENLAFAXINE SUCCINATE MONOHYDRATE [Suspect]
     Indication: DEPRESSION
     Dosage: 50 MG 1X PER 1 DAY, ORAL
     Route: 048
     Dates: start: 20080530
  2. PROVIGIL [Concomitant]
  3. ADDERALL 10 [Concomitant]
  4. WELLBUTRIN [Concomitant]

REACTIONS (3)
  - CONDITION AGGRAVATED [None]
  - POOR QUALITY SLEEP [None]
  - VISUAL IMPAIRMENT [None]
